FAERS Safety Report 12928729 (Version 2)
Quarter: 2016Q4

REPORT INFORMATION
  Report Type: Spontaneous
  Country: DE (occurrence: DE)
  Receive Date: 20161110
  Receipt Date: 20161201
  Transmission Date: 20170207
  Serious: Yes (Life-Threatening, Hospitalization, Other)
  Sender: FDA-Public Use
  Company Number: DE-BRISTOL-MYERS SQUIBB COMPANY-BMS-2016-093607

PATIENT
  Age: 87 Year
  Sex: Female
  Weight: 75 kg

DRUGS (2)
  1. ELIQUIS [Suspect]
     Active Substance: APIXABAN
     Indication: CEREBROVASCULAR ACCIDENT PROPHYLAXIS
     Dosage: 2.5 MG, BID
     Route: 065
     Dates: start: 201607, end: 20160814
  2. METOPROLOL. [Concomitant]
     Active Substance: METOPROLOL
     Indication: HYPERTENSION
     Dosage: 65 MG, BID
     Route: 065

REACTIONS (3)
  - Fall [Unknown]
  - Thalamus haemorrhage [Not Recovered/Not Resolved]
  - Prescribed underdose [Unknown]

NARRATIVE: CASE EVENT DATE: 20160814
